FAERS Safety Report 21422676 (Version 1)
Quarter: 2022Q4

REPORT INFORMATION
  Report Type: Report from Study
  Country: EG (occurrence: EG)
  Receive Date: 20221007
  Receipt Date: 20221007
  Transmission Date: 20230113
  Serious: Yes (Other)
  Sender: FDA-Public Use
  Company Number: EG-NOVARTISPH-NVSC2022EG223296

PATIENT
  Age: 57 Year
  Sex: Male

DRUGS (5)
  1. COSENTYX [Suspect]
     Active Substance: SECUKINUMAB
     Indication: Ankylosing spondylitis
     Dosage: 150 MG, QMO
     Route: 065
     Dates: start: 202206, end: 20220928
  2. CLOPEX [Concomitant]
     Indication: Cardiac operation
     Dosage: UNK, QD
     Route: 048
     Dates: start: 2019
  3. BISOPROLOL FUMARATE [Concomitant]
     Active Substance: BISOPROLOL FUMARATE
     Indication: Cardiac operation
     Dosage: 5 DOSAGE FORM, QD
     Route: 048
     Dates: start: 2013
  4. ASPIRIN [Concomitant]
     Active Substance: ASPIRIN
     Indication: Cardiac operation
     Dosage: UNK, BID
     Route: 065
     Dates: start: 2013
  5. DEXAMETHASONE [Concomitant]
     Active Substance: DEXAMETHASONE
     Indication: Ankylosing spondylitis
     Dosage: UNK, Q3W (3 TIMES PER WEEKS OR UPON NEEDED)
     Route: 065
     Dates: start: 2012

REACTIONS (3)
  - Seizure [Not Recovered/Not Resolved]
  - Pain [Not Recovered/Not Resolved]
  - Drug ineffective [Not Recovered/Not Resolved]

NARRATIVE: CASE EVENT DATE: 20220601
